FAERS Safety Report 5515368-2 (Version None)
Quarter: 2007Q4

REPORT INFORMATION
  Report Type: 
  Country: None (occurrence: None)
  Receive Date: 20071109
  Receipt Date: 20071029
  Transmission Date: 20080405
  Serious: Yes (Other)
  Sender: FDA-Public Use
  Company Number: GXKR2007US09325

PATIENT
  Age: 49 Year
  Sex: Male

DRUGS (1)
  1. LORATADINE [Suspect]
     Indication: MULTIPLE ALLERGIES
     Dosage: 10 MG, QD

REACTIONS (4)
  - AUTOIMMUNE HEPATITIS [None]
  - HEPATOCELLULAR DAMAGE [None]
  - NEUROPATHY PERIPHERAL [None]
  - SMOOTH MUSCLE ANTIBODY POSITIVE [None]
